FAERS Safety Report 4343135-4 (Version None)
Quarter: 2004Q2

REPORT INFORMATION
  Report Type: 
  Country: None (occurrence: None)
  Receive Date: 20040421
  Receipt Date: 20040416
  Transmission Date: 20050107
  Serious: Yes (Death)
  Sender: FDA-Public Use
  Company Number: US-BRISTOL-MYERS SQUIBB COMPANY-12562344

PATIENT
  Sex: Male

DRUGS (2)
  1. ERBITUX [Suspect]
     Indication: COLORECTAL CANCER
     Dosage: SECOND DOSE
     Route: 042
     Dates: start: 20040401, end: 20040401
  2. IRINOTECAN [Concomitant]
     Indication: COLORECTAL CANCER
     Dates: start: 20040401, end: 20040401

REACTIONS (2)
  - DEATH [None]
  - MYOCARDIAL INFARCTION [None]
